FAERS Safety Report 15159448 (Version 1)
Quarter: 2018Q3

REPORT INFORMATION
  Report Type: Spontaneous
  Country: MX (occurrence: MX)
  Receive Date: 20180718
  Receipt Date: 20180718
  Transmission Date: 20181010
  Serious: Yes (Other)
  Sender: FDA-Public Use
  Company Number: MX-JNJFOC-20180713841

PATIENT
  Age: 54 Year
  Sex: Male

DRUGS (1)
  1. CONCERTA [Suspect]
     Active Substance: METHYLPHENIDATE HYDROCHLORIDE
     Indication: PRODUCT USED FOR UNKNOWN INDICATION
     Route: 065

REACTIONS (1)
  - Cerebrovascular accident [Unknown]
